FAERS Safety Report 7481612-8 (Version None)
Quarter: 2011Q2

REPORT INFORMATION
  Report Type: 
  Country: None (occurrence: None)
  Receive Date: 20110516
  Receipt Date: 20101201
  Transmission Date: 20111010
  Serious: Yes (Other)
  Sender: FDA-Public Use
  Company Number: DE-ROCHE-748005

PATIENT
  Age: 79 Year
  Sex: Male

DRUGS (2)
  1. IBANDRONATE SODIUM [Suspect]
     Route: 042
  2. MARCUMAR [Concomitant]

REACTIONS (1)
  - OSTEONECROSIS OF JAW [None]
